FAERS Safety Report 8773536 (Version 1)
Quarter: 2012Q4

REPORT INFORMATION
  Report Type: Report from Study
  Country: AU (occurrence: AU)
  Receive Date: 20120907
  Receipt Date: 20120907
  Transmission Date: 20130627
  Serious: Yes (Hospitalization)
  Sender: FDA-Public Use
  Company Number: AU-GLAXOSMITHKLINE-B0649619B

PATIENT
  Age: 67 Year
  Sex: Female
  Weight: 86.1 kg

DRUGS (6)
  1. LAPATINIB [Suspect]
     Indication: BREAST CANCER
     Dosage: 1500MG Per day
     Route: 048
     Dates: start: 20100514
  2. TRASTUZUMAB [Suspect]
     Indication: BREAST CANCER
     Dosage: 2MGK Weekly
     Route: 042
     Dates: start: 20100108
  3. DOCETAXEL [Suspect]
     Indication: BREAST CANCER
     Dosage: 75MGM2 Every 3 weeks
     Route: 042
     Dates: start: 20100108, end: 20100312
  4. STILNOX [Concomitant]
     Dosage: 1G At night
     Route: 048
  5. EFFEXOR [Concomitant]
     Dosage: 225G Per day
     Route: 048
  6. ALPRAZOLAM [Concomitant]

REACTIONS (2)
  - Depression [Recovered/Resolved]
  - Overdose [Unknown]
